FAERS Safety Report 8590597-2 (Version None)
Quarter: 2012Q3

REPORT INFORMATION
  Report Type: 
  Country: None (occurrence: None)
  Receive Date: 20120813
  Receipt Date: 20120810
  Transmission Date: 20120928
  Serious: Yes (Other)
  Sender: FDA-Public Use
  Company Number: US-PFIZER INC-2012134144

PATIENT
  Age: 5 Year
  Sex: Male

DRUGS (2)
  1. ZOLOFT [Suspect]
     Dosage: UNK, 1X/DAY
     Route: 048
  2. ZOLOFT [Suspect]
     Dosage: 10 MG, 1X/DAY
     Route: 048
     Dates: start: 20101101

REACTIONS (4)
  - DYSPHAGIA [None]
  - ASTHMA [None]
  - AUTISM [None]
  - FEEDING DISORDER [None]
